FAERS Safety Report 6610229-X (Version None)
Quarter: 2010Q1

REPORT INFORMATION
  Report Type: 
  Country: None (occurrence: None)
  Receive Date: 20100302
  Receipt Date: 20100222
  Transmission Date: 20100710
  Serious: Yes (Death)
  Sender: FDA-Public Use
  Company Number: SI-CELGENEUS-261-21880-10021701

PATIENT
  Sex: Male
  Weight: 70 kg

DRUGS (1)
  1. REVLIMID [Suspect]
     Indication: DRUG USE FOR UNKNOWN INDICATION
     Route: 048
     Dates: start: 20100106, end: 20100111

REACTIONS (2)
  - DISEASE PROGRESSION [None]
  - PNEUMONIA [None]
